FAERS Safety Report 9657199 (Version 2)
Quarter: 2013Q4

REPORT INFORMATION
  Report Type: Spontaneous
  Country: SG (occurrence: SG)
  Receive Date: 20131030
  Receipt Date: 20131113
  Transmission Date: 20140711
  Serious: Yes (Life-Threatening, Other)
  Sender: FDA-Public Use
  Company Number: SG-BAYER-2013-130174

PATIENT
  Age: 47 Year
  Sex: Female

DRUGS (3)
  1. STIVARGA [Suspect]
     Indication: COLORECTAL CANCER METASTATIC
     Dosage: 120 MG, QD
     Route: 048
     Dates: start: 20130902
  2. PIPERACILLIN [Concomitant]
     Indication: INFECTION PROPHYLAXIS
     Dosage: UNK
     Route: 042
  3. TAZOBACTAM [Concomitant]
     Indication: INFECTION PROPHYLAXIS

REACTIONS (6)
  - Hepatotoxicity [None]
  - Hepatic enzyme abnormal [None]
  - Disseminated intravascular coagulation [None]
  - Platelet count decreased [None]
  - Blood fibrinogen decreased [None]
  - Hypercoagulation [None]
